FAERS Safety Report 25112079 (Version 2)
Quarter: 2025Q1

REPORT INFORMATION
  Report Type: Spontaneous
  Country: FR (occurrence: FR)
  Receive Date: 20250324
  Receipt Date: 20250324
  Transmission Date: 20250409
  Serious: Yes (Hospitalization)
  Sender: MYLAN
  Company Number: FR-AUROBINDO-AUR-APL-2025-012047

PATIENT

DRUGS (64)
  1. AMLODIPINE [Suspect]
     Active Substance: AMLODIPINE BESYLATE
     Indication: Hypertension
  2. AMLODIPINE [Suspect]
     Active Substance: AMLODIPINE BESYLATE
  3. AMLODIPINE [Suspect]
     Active Substance: AMLODIPINE BESYLATE
     Route: 064
  4. AMLODIPINE [Suspect]
     Active Substance: AMLODIPINE BESYLATE
     Route: 064
  5. AMLODIPINE [Suspect]
     Active Substance: AMLODIPINE BESYLATE
  6. AMLODIPINE [Suspect]
     Active Substance: AMLODIPINE BESYLATE
  7. AMLODIPINE [Suspect]
     Active Substance: AMLODIPINE BESYLATE
     Route: 064
  8. AMLODIPINE [Suspect]
     Active Substance: AMLODIPINE BESYLATE
     Route: 064
  9. PERINDOPRIL [Suspect]
     Active Substance: PERINDOPRIL
     Indication: Hypertension
  10. PERINDOPRIL [Suspect]
     Active Substance: PERINDOPRIL
  11. PERINDOPRIL [Suspect]
     Active Substance: PERINDOPRIL
     Route: 064
  12. PERINDOPRIL [Suspect]
     Active Substance: PERINDOPRIL
     Route: 064
  13. PERINDOPRIL [Suspect]
     Active Substance: PERINDOPRIL
  14. PERINDOPRIL [Suspect]
     Active Substance: PERINDOPRIL
  15. PERINDOPRIL [Suspect]
     Active Substance: PERINDOPRIL
     Route: 064
  16. PERINDOPRIL [Suspect]
     Active Substance: PERINDOPRIL
     Route: 064
  17. METFORMIN [Suspect]
     Active Substance: METFORMIN HYDROCHLORIDE
     Indication: Diabetes mellitus
  18. METFORMIN [Suspect]
     Active Substance: METFORMIN HYDROCHLORIDE
  19. METFORMIN [Suspect]
     Active Substance: METFORMIN HYDROCHLORIDE
     Route: 064
  20. METFORMIN [Suspect]
     Active Substance: METFORMIN HYDROCHLORIDE
     Route: 064
  21. METFORMIN [Suspect]
     Active Substance: METFORMIN HYDROCHLORIDE
  22. METFORMIN [Suspect]
     Active Substance: METFORMIN HYDROCHLORIDE
  23. METFORMIN [Suspect]
     Active Substance: METFORMIN HYDROCHLORIDE
     Route: 064
  24. METFORMIN [Suspect]
     Active Substance: METFORMIN HYDROCHLORIDE
     Route: 064
  25. ZUCLOPENTHIXOL [Suspect]
     Active Substance: ZUCLOPENTHIXOL
     Indication: Schizophrenia
     Dosage: 400 MILLIGRAM, 1X MONTHLY
     Dates: end: 202307
  26. ZUCLOPENTHIXOL [Suspect]
     Active Substance: ZUCLOPENTHIXOL
     Dosage: 400 MILLIGRAM, 1X MONTHLY
     Dates: end: 202307
  27. ZUCLOPENTHIXOL [Suspect]
     Active Substance: ZUCLOPENTHIXOL
     Dosage: 400 MILLIGRAM, 1X MONTHLY
     Route: 064
     Dates: end: 202307
  28. ZUCLOPENTHIXOL [Suspect]
     Active Substance: ZUCLOPENTHIXOL
     Dosage: 400 MILLIGRAM, 1X MONTHLY
     Route: 064
     Dates: end: 202307
  29. ZUCLOPENTHIXOL [Suspect]
     Active Substance: ZUCLOPENTHIXOL
     Dosage: 400 MILLIGRAM, 1X MONTHLY
     Dates: end: 202307
  30. ZUCLOPENTHIXOL [Suspect]
     Active Substance: ZUCLOPENTHIXOL
     Dosage: 400 MILLIGRAM, 1X MONTHLY
     Dates: end: 202307
  31. ZUCLOPENTHIXOL [Suspect]
     Active Substance: ZUCLOPENTHIXOL
     Dosage: 400 MILLIGRAM, 1X MONTHLY
     Route: 064
     Dates: end: 202307
  32. ZUCLOPENTHIXOL [Suspect]
     Active Substance: ZUCLOPENTHIXOL
     Dosage: 400 MILLIGRAM, 1X MONTHLY
     Route: 064
     Dates: end: 202307
  33. TROPATEPINE HYDROCHLORIDE [Suspect]
     Active Substance: TROPATEPINE HYDROCHLORIDE
     Indication: Schizophrenia
  34. TROPATEPINE HYDROCHLORIDE [Suspect]
     Active Substance: TROPATEPINE HYDROCHLORIDE
  35. TROPATEPINE HYDROCHLORIDE [Suspect]
     Active Substance: TROPATEPINE HYDROCHLORIDE
     Route: 064
  36. TROPATEPINE HYDROCHLORIDE [Suspect]
     Active Substance: TROPATEPINE HYDROCHLORIDE
     Route: 064
  37. TROPATEPINE HYDROCHLORIDE [Suspect]
     Active Substance: TROPATEPINE HYDROCHLORIDE
  38. TROPATEPINE HYDROCHLORIDE [Suspect]
     Active Substance: TROPATEPINE HYDROCHLORIDE
  39. TROPATEPINE HYDROCHLORIDE [Suspect]
     Active Substance: TROPATEPINE HYDROCHLORIDE
     Route: 064
  40. TROPATEPINE HYDROCHLORIDE [Suspect]
     Active Substance: TROPATEPINE HYDROCHLORIDE
     Route: 064
  41. NICARDIPINE HYDROCHLORIDE [Suspect]
     Active Substance: NICARDIPINE HYDROCHLORIDE
     Indication: Hypertension
     Dosage: 100 MILLIGRAM, QD
     Dates: start: 202312
  42. NICARDIPINE HYDROCHLORIDE [Suspect]
     Active Substance: NICARDIPINE HYDROCHLORIDE
     Dosage: 100 MILLIGRAM, QD
     Dates: start: 202312
  43. NICARDIPINE HYDROCHLORIDE [Suspect]
     Active Substance: NICARDIPINE HYDROCHLORIDE
     Dosage: 100 MILLIGRAM, QD
     Route: 064
     Dates: start: 202312
  44. NICARDIPINE HYDROCHLORIDE [Suspect]
     Active Substance: NICARDIPINE HYDROCHLORIDE
     Dosage: 100 MILLIGRAM, QD
     Route: 064
     Dates: start: 202312
  45. NICARDIPINE HYDROCHLORIDE [Suspect]
     Active Substance: NICARDIPINE HYDROCHLORIDE
     Dosage: 100 MILLIGRAM, QD
     Dates: start: 202312
  46. NICARDIPINE HYDROCHLORIDE [Suspect]
     Active Substance: NICARDIPINE HYDROCHLORIDE
     Dosage: 100 MILLIGRAM, QD
     Dates: start: 202312
  47. NICARDIPINE HYDROCHLORIDE [Suspect]
     Active Substance: NICARDIPINE HYDROCHLORIDE
     Dosage: 100 MILLIGRAM, QD
     Route: 064
     Dates: start: 202312
  48. NICARDIPINE HYDROCHLORIDE [Suspect]
     Active Substance: NICARDIPINE HYDROCHLORIDE
     Dosage: 100 MILLIGRAM, QD
     Route: 064
     Dates: start: 202312
  49. METHIMAZOLE [Suspect]
     Active Substance: METHIMAZOLE
     Indication: Graves^ disease
  50. METHIMAZOLE [Suspect]
     Active Substance: METHIMAZOLE
  51. METHIMAZOLE [Suspect]
     Active Substance: METHIMAZOLE
     Route: 064
  52. METHIMAZOLE [Suspect]
     Active Substance: METHIMAZOLE
     Route: 064
  53. METHIMAZOLE [Suspect]
     Active Substance: METHIMAZOLE
  54. METHIMAZOLE [Suspect]
     Active Substance: METHIMAZOLE
  55. METHIMAZOLE [Suspect]
     Active Substance: METHIMAZOLE
     Route: 064
  56. METHIMAZOLE [Suspect]
     Active Substance: METHIMAZOLE
     Route: 064
  57. URISPAS [Suspect]
     Active Substance: FLAVOXATE HYDROCHLORIDE
     Indication: Urinary incontinence
  58. URISPAS [Suspect]
     Active Substance: FLAVOXATE HYDROCHLORIDE
  59. URISPAS [Suspect]
     Active Substance: FLAVOXATE HYDROCHLORIDE
     Route: 064
  60. URISPAS [Suspect]
     Active Substance: FLAVOXATE HYDROCHLORIDE
     Route: 064
  61. URISPAS [Suspect]
     Active Substance: FLAVOXATE HYDROCHLORIDE
  62. URISPAS [Suspect]
     Active Substance: FLAVOXATE HYDROCHLORIDE
  63. URISPAS [Suspect]
     Active Substance: FLAVOXATE HYDROCHLORIDE
     Route: 064
  64. URISPAS [Suspect]
     Active Substance: FLAVOXATE HYDROCHLORIDE
     Route: 064

REACTIONS (2)
  - Premature baby [Recovered/Resolved]
  - Foetal exposure during pregnancy [Recovered/Resolved]

NARRATIVE: CASE EVENT DATE: 20240121
